FAERS Safety Report 25941071 (Version 1)
Quarter: 2025Q4

REPORT INFORMATION
  Report Type: Spontaneous
  Country: US (occurrence: None)
  Receive Date: 20251018
  Receipt Date: 20251018
  Transmission Date: 20260118
  Serious: No
  Sender: FDA-CTU
  Company Number: None

PATIENT
  Age: 71 Year
  Sex: Female
  Weight: 103.5 kg

DRUGS (18)
  1. RITUXAN [Suspect]
     Active Substance: RITUXIMAB
     Indication: Vasculitis
     Route: 042
     Dates: start: 20251017, end: 20251017
  2. RITUXAN [Suspect]
     Active Substance: RITUXIMAB
     Indication: Granulomatosis with polyangiitis
  3. SYNTHROID [Concomitant]
     Active Substance: LEVOTHYROXINE SODIUM
  4. PROTONIX [Concomitant]
     Active Substance: PANTOPRAZOLE SODIUM
  5. GABAPENTIN [Concomitant]
     Active Substance: GABAPENTIN
  6. AMLODIPINE [Concomitant]
     Active Substance: AMLODIPINE BESYLATE
  7. CARVEDILOL [Concomitant]
     Active Substance: CARVEDILOL
  8. PREDNISONE [Concomitant]
     Active Substance: PREDNISONE
  9. VITAMIN D NOS [Concomitant]
     Active Substance: CHOLECALCIFEROL\ERGOCALCIFEROL
  10. NM-6603 [Concomitant]
     Active Substance: NM-6603
  11. CALCIUM [Concomitant]
     Active Substance: CALCIUM
  12. HERBALS\TURMERIC [Concomitant]
     Active Substance: HERBALS\TURMERIC
  13. VITAMINS [Concomitant]
     Active Substance: VITAMINS
  14. vegan omega 3 [Concomitant]
  15. NIACINAMIDE [Concomitant]
     Active Substance: NIACINAMIDE
  16. PROBIOTICS NOS [Concomitant]
     Active Substance: PROBIOTICS NOS
  17. VITAMINS NOS [Concomitant]
     Active Substance: VITAMINS
  18. polypodium leucotomo [Concomitant]

REACTIONS (2)
  - Blood glucose increased [None]
  - Infusion related reaction [None]

NARRATIVE: CASE EVENT DATE: 20251017
